FAERS Safety Report 5191452-0 (Version None)
Quarter: 2006Q4

REPORT INFORMATION
  Report Type: 
  Country: None (occurrence: None)
  Receive Date: 20061226
  Receipt Date: 20050111
  Transmission Date: 20070319
  Serious: Yes (Hospitalization)
  Sender: FDA-Public Use
  Company Number: FR-MERCK-0501USA01255

PATIENT
  Age: 91 Year
  Sex: Female

DRUGS (5)
  1. MODURETIC 5-50 [Suspect]
     Indication: MALIGNANT HYPERTENSION
     Route: 048
     Dates: end: 20040909
  2. PERINDOPRIL ERBUMINE [Concomitant]
     Route: 065
  3. MINISINTROM [Concomitant]
     Route: 065
     Dates: end: 20040909
  4. LORAZEPAM [Concomitant]
     Route: 065
  5. CORDARONE [Concomitant]
     Route: 065
     Dates: end: 20040909

REACTIONS (7)
  - AORTIC VALVE INCOMPETENCE [None]
  - CEREBRAL DISORDER [None]
  - COMPUTERISED TOMOGRAM ABNORMAL [None]
  - CONFUSIONAL STATE [None]
  - HYPONATRAEMIA [None]
  - MITRAL VALVE INCOMPETENCE [None]
  - PLEURAL EFFUSION [None]
